FAERS Safety Report 5289211-3 (Version None)
Quarter: 2007Q1

REPORT INFORMATION
  Report Type: 
  Country: None (occurrence: None)
  Receive Date: 20070124
  Receipt Date: 20060524
  Transmission Date: 20070707
  Serious: No
  Sender: FDA-Public Use
  Company Number: E2020-00089-SPO-US

PATIENT
  Age: 88 Year

DRUGS (1)
  1. ARICEPT [Suspect]
     Dosage: 10 MG, 1 IN 1 D, ORAL
     Route: 048

REACTIONS (1)
  - CONVULSION [None]
